FAERS Safety Report 5634524-6 (Version None)
Quarter: 2008Q1

REPORT INFORMATION
  Report Type: 
  Country: None (occurrence: None)
  Receive Date: 20080222
  Receipt Date: 20080213
  Transmission Date: 20080703
  Serious: Yes (Other)
  Sender: FDA-Public Use
  Company Number: FR-WYE-G01059808

PATIENT
  Age: 17 Year
  Sex: Male

DRUGS (7)
  1. EFFEXOR [Suspect]
     Indication: DEPRESSION
     Route: 048
     Dates: start: 20080105, end: 20080101
  2. EFFEXOR [Suspect]
     Dosage: DOSE INCREASED 25 MG BY 25 MG UP TO 150 MG TOTAL DAILY
     Route: 048
     Dates: start: 20080101, end: 20080124
  3. EFFEXOR [Suspect]
     Dosage: 150 MG TOTAL DAILY
     Route: 048
     Dates: start: 20080125, end: 20080131
  4. EFFEXOR [Suspect]
     Dosage: 200 MG TOTAL DAILY
     Route: 048
     Dates: start: 20080201, end: 20080204
  5. EFFEXOR [Suspect]
     Dosage: 150 MG TOTAL DAILY
     Route: 048
     Dates: start: 20080205, end: 20080201
  6. EFFEXOR [Suspect]
     Dosage: 200 MG TOTAL DAILY
     Route: 048
     Dates: start: 20080201
  7. TERCIAN [Concomitant]
     Dosage: UNKNOWN; TAKEN IN THE EVENINGS
     Route: 048
     Dates: start: 20080101

REACTIONS (6)
  - AGITATION [None]
  - ASPHYXIA [None]
  - INTENTIONAL SELF-INJURY [None]
  - SKIN LACERATION [None]
  - SUICIDAL IDEATION [None]
  - SUICIDE ATTEMPT [None]
